FAERS Safety Report 12295666 (Version 1)
Quarter: 2016Q2

REPORT INFORMATION
  Report Type: Spontaneous
  Country: US (occurrence: None)
  Receive Date: 20160421
  Receipt Date: 20160421
  Transmission Date: 20160815
  Serious: No
  Sender: FDA-Public Use
  Company Number: None

PATIENT
  Age: 54 Year
  Sex: Female

DRUGS (1)
  1. XELJANZ [Suspect]
     Active Substance: TOFACITINIB CITRATE
     Indication: RHEUMATOID ARTHRITIS
     Dosage: PRIOR TO FEB-2016
     Route: 048

REACTIONS (3)
  - Rheumatoid arthritis [None]
  - Arthralgia [None]
  - Asthma [None]

NARRATIVE: CASE EVENT DATE: 201602
